FAERS Safety Report 8481008-6 (Version None)
Quarter: 2012Q2

REPORT INFORMATION
  Report Type: 
  Country: None (occurrence: None)
  Receive Date: 20120622
  Receipt Date: 20120607
  Transmission Date: 20120825
  Serious: Yes (Other)
  Sender: FDA-Public Use
  Company Number: FR-1192635

PATIENT
  Age: 68 Year
  Sex: Female

DRUGS (3)
  1. AZOPT [Suspect]
     Dosage: (OPHTHALMIC)
  2. OXEOL (OXEOL) (ASTRAZENECA) [Suspect]
  3. THEOPHYLLINE [Suspect]

REACTIONS (4)
  - ASPIRATION [None]
  - GASTROOESOPHAGEAL REFLUX DISEASE [None]
  - NAUSEA [None]
  - DYSPEPSIA [None]
